FAERS Safety Report 9981627 (Version 1)
Quarter: 2014Q1

REPORT INFORMATION
  Report Type: Report from Study
  Country: US (occurrence: US)
  Receive Date: 20140307
  Receipt Date: 20140307
  Transmission Date: 20141002
  Serious: No
  Sender: FDA-Public Use
  Company Number: US-ABBVIE-13P-163-1181565-00

PATIENT
  Age: 35 Year
  Sex: Female

DRUGS (4)
  1. HUMIRA [Suspect]
     Indication: CROHN^S DISEASE
     Dates: start: 20131115, end: 20131115
  2. HUMIRA [Suspect]
     Dates: start: 20131129
  3. PENTASA [Concomitant]
     Indication: CROHN^S DISEASE
     Route: 048
  4. MULTI-VITAMIN [Concomitant]
     Indication: SUPPLEMENTATION THERAPY

REACTIONS (9)
  - Injection site pain [Recovering/Resolving]
  - Malaise [Recovering/Resolving]
  - Sinus congestion [Recovering/Resolving]
  - Rhinorrhoea [Recovering/Resolving]
  - Sinus headache [Recovering/Resolving]
  - Ear discomfort [Recovering/Resolving]
  - Ear discomfort [Recovering/Resolving]
  - Ear pain [Not Recovered/Not Resolved]
  - Oropharyngeal pain [Recovering/Resolving]
